FAERS Safety Report 14539214 (Version 2)
Quarter: 2018Q1

REPORT INFORMATION
  Report Type: Report from Study
  Country: US (occurrence: US)
  Receive Date: 20180216
  Receipt Date: 20180307
  Transmission Date: 20180509
  Serious: Yes (Hospitalization, Other)
  Sender: FDA-Public Use
  Company Number: US-ASTELLAS-2017US054052

PATIENT
  Age: 81 Year
  Sex: Male

DRUGS (1)
  1. ENZALUTAMIDE [Suspect]
     Active Substance: ENZALUTAMIDE
     Indication: PROSTATE CANCER
     Route: 048
     Dates: start: 20170303

REACTIONS (5)
  - Fluid intake reduced [Recovered/Resolved]
  - Dizziness [Recovered/Resolved]
  - Circulatory collapse [Recovered/Resolved]
  - Dehydration [Recovered/Resolved]
  - Hypophagia [Unknown]

NARRATIVE: CASE EVENT DATE: 20171214
